FAERS Safety Report 17874702 (Version 1)
Quarter: 2020Q2

REPORT INFORMATION
  Report Type: Spontaneous
  Country: US (occurrence: US)
  Receive Date: 20200608
  Receipt Date: 20200608
  Transmission Date: 20200714
  Serious: Yes (Death)
  Sender: FDA-Public Use
  Company Number: None

PATIENT
  Age: 68 Year
  Sex: Female
  Weight: 101 kg

DRUGS (20)
  1. DOCUSATE [Concomitant]
     Active Substance: DOCUSATE
     Dates: start: 20200516, end: 20200529
  2. NOREPINEPHRINE. [Concomitant]
     Active Substance: NOREPINEPHRINE
     Dates: start: 20200522, end: 20200529
  3. REMDESIVIR. [Suspect]
     Active Substance: REMDESIVIR
     Indication: COVID-19
     Route: 040
     Dates: start: 20200521, end: 20200523
  4. FUROSEMIDE. [Concomitant]
     Active Substance: FUROSEMIDE
     Dates: start: 20200521, end: 20200522
  5. VANCOMYCIN [Concomitant]
     Active Substance: VANCOMYCIN
     Dates: start: 20200523, end: 20200529
  6. MEROPENEM. [Concomitant]
     Active Substance: MEROPENEM
     Dates: start: 20200523, end: 20200529
  7. LISINOPRIL. [Concomitant]
     Active Substance: LISINOPRIL
     Dates: start: 20200513, end: 20200524
  8. ENOXAPARIN [Concomitant]
     Active Substance: ENOXAPARIN
     Dates: start: 20200513, end: 20200524
  9. ASPIRIN. [Concomitant]
     Active Substance: ASPIRIN
     Dates: start: 20200513, end: 20200522
  10. DUONEB [Concomitant]
     Active Substance: ALBUTEROL SULFATE\IPRATROPIUM BROMIDE
     Dates: start: 20200512, end: 20200528
  11. GUAIFENESIN. [Concomitant]
     Active Substance: GUAIFENESIN
     Dates: start: 20200512, end: 20200521
  12. METOPROLOL. [Concomitant]
     Active Substance: METOPROLOL
     Dates: start: 20200513, end: 20200524
  13. FENTANYL. [Concomitant]
     Active Substance: FENTANYL
     Dates: start: 20200522, end: 20200529
  14. GABAPENTIN. [Concomitant]
     Active Substance: GABAPENTIN
     Dates: start: 20200512, end: 20200529
  15. PANTOPRAZOLE [Concomitant]
     Active Substance: PANTOPRAZOLE
     Dates: start: 20200513, end: 20200524
  16. INSULIN GLARGINE [Concomitant]
     Active Substance: INSULIN GLARGINE
     Dates: start: 20200520, end: 20200529
  17. VENLAFAXINE [Concomitant]
     Active Substance: VENLAFAXINE HYDROCHLORIDE
     Dates: start: 20200513, end: 20200523
  18. MORPHINE [Concomitant]
     Active Substance: MORPHINE
     Dates: start: 20200521, end: 20200522
  19. PROPOFOL. [Concomitant]
     Active Substance: PROPOFOL
     Dates: start: 20200522, end: 20200528
  20. MEHTYLPREDNISOLONE [Concomitant]
     Active Substance: METHYLPREDNISOLONE
     Dates: start: 20200513, end: 20200529

REACTIONS (6)
  - Alanine aminotransferase increased [None]
  - White blood cell count increased [None]
  - Bacterial infection [None]
  - Blood creatinine increased [None]
  - Aspartate aminotransferase increased [None]
  - Respiratory failure [None]

NARRATIVE: CASE EVENT DATE: 20200529
